FAERS Safety Report 6337433-2 (Version None)
Quarter: 2009Q3

REPORT INFORMATION
  Report Type: 
  Country: None (occurrence: None)
  Receive Date: 20090902
  Receipt Date: 20090828
  Transmission Date: 20100115
  Serious: Yes (Hospitalization)
  Sender: FDA-Public Use
  Company Number: US-JNJFOC-20090808791

PATIENT
  Age: 33 Year
  Sex: Male

DRUGS (2)
  1. CYCLOBENZAPRINE [Suspect]
     Indication: DRUG USE FOR UNKNOWN INDICATION
     Dosage: 26 TABLETS OVER 2 DAYS
     Route: 048
  2. TYLENOL W/ CODEINE NO. 3 [Suspect]
     Indication: DRUG USE FOR UNKNOWN INDICATION
     Dosage: 30 TABLETS (9000 MG ACETAMINOPHEN, 1800 MG CODEINE)
     Route: 048

REACTIONS (3)
  - CHOREOATHETOSIS [None]
  - MULTIPLE DRUG OVERDOSE INTENTIONAL [None]
  - MYOCLONUS [None]
